FAERS Safety Report 6238811-2 (Version None)
Quarter: 2009Q2

REPORT INFORMATION
  Report Type: 
  Country: None (occurrence: None)
  Receive Date: 20090622
  Receipt Date: 20090616
  Transmission Date: 20091009
  Serious: Yes (Death)
  Sender: FDA-Public Use
  Company Number: JP-ASTRAZENECA-2009SE02983

PATIENT

DRUGS (6)
  1. BLOPRESS [Suspect]
     Indication: HYPERTENSION
     Route: 048
     Dates: start: 20070710, end: 20070715
  2. TAKEPRON [Concomitant]
     Route: 065
  3. PERDIPINE [Concomitant]
     Route: 042
  4. INSULIN HUMAN [Concomitant]
     Route: 042
  5. MUCODYNE [Concomitant]
     Route: 048
  6. VOLTAREN [Concomitant]
     Route: 065

REACTIONS (1)
  - CEREBRAL INFARCTION [None]
